FAERS Safety Report 22623335 (Version 5)
Quarter: 2023Q4

REPORT INFORMATION
  Report Type: Report from Study
  Country: US (occurrence: US)
  Receive Date: 20230621
  Receipt Date: 20231222
  Transmission Date: 20240109
  Serious: Yes (Death, Other)
  Sender: FDA-Public Use
  Company Number: US-ABBVIE-5297764

PATIENT
  Sex: Female
  Weight: 50 kg

DRUGS (4)
  1. IMBRUVICA [Suspect]
     Active Substance: IBRUTINIB
     Indication: Chronic lymphocytic leukaemia
     Route: 048
  2. OMEPRAZOLE [Concomitant]
     Active Substance: OMEPRAZOLE
     Indication: Product used for unknown indication
  3. XYZAL [Concomitant]
     Active Substance: LEVOCETIRIZINE DIHYDROCHLORIDE
     Indication: Product used for unknown indication
  4. DOCUSATE [Concomitant]
     Active Substance: DOCUSATE
     Indication: Product used for unknown indication

REACTIONS (9)
  - Sepsis [Fatal]
  - Hypogammaglobulinaemia [Unknown]
  - Chronic lymphocytic leukaemia [Fatal]
  - Pleural effusion [Unknown]
  - Lung neoplasm malignant [Unknown]
  - Infectious pleural effusion [Fatal]
  - Pneumonia [Fatal]
  - Dyspnoea [Unknown]
  - Cough [Unknown]
